FAERS Safety Report 14776183 (Version 1)
Quarter: 2018Q2

REPORT INFORMATION
  Report Type: Report from Study
  Country: NL (occurrence: NL)
  Receive Date: 20180418
  Receipt Date: 20180418
  Transmission Date: 20180711
  Serious: Yes (Hospitalization, Other)
  Sender: FDA-Public Use
  Company Number: NL-MPIJNJ-2008_00530

PATIENT
  Age: 52 Year
  Sex: Male
  Weight: 59 kg

DRUGS (5)
  1. TRAMAL [Concomitant]
     Active Substance: TRAMADOL
     Dosage: UNK
     Route: 065
  2. ZELITREX [Concomitant]
     Active Substance: VALACYCLOVIR HYDROCHLORIDE
     Dosage: 500 MG, UNK
     Route: 065
  3. COTRIMOXAZOLE [Concomitant]
     Active Substance: SULFAMETHOXAZOLE\TRIMETHOPRIM
     Dosage: 480 MG, UNK
     Route: 065
  4. VELCADE [Suspect]
     Active Substance: BORTEZOMIB
     Indication: PLASMA CELL MYELOMA
     Dosage: UNK
     Route: 065
     Dates: start: 20080107
  5. FOLIC ACID. [Concomitant]
     Active Substance: FOLIC ACID
     Dosage: 5 MG, UNK
     Route: 065

REACTIONS (10)
  - Musculoskeletal pain [Unknown]
  - Unresponsive to stimuli [Unknown]
  - Nystagmus [Unknown]
  - Hyperaesthesia [Unknown]
  - Staring [Unknown]
  - Loss of consciousness [Unknown]
  - Pallor [Unknown]
  - Neck pain [Unknown]
  - Epilepsy [Unknown]
  - Headache [Unknown]

NARRATIVE: CASE EVENT DATE: 20080208
